FAERS Safety Report 9565838 (Version 1)
Quarter: 2013Q3

REPORT INFORMATION
  Report Type: Spontaneous
  Country: US (occurrence: US)
  Receive Date: 20130930
  Receipt Date: 20130930
  Transmission Date: 20140515
  Serious: No
  Sender: FDA-Public Use
  Company Number: US-COVIDIEN/TYCO HEALTHCARE/MALLINCKRODT-T201203575

PATIENT
  Age: 54 Year
  Sex: Female

DRUGS (1)
  1. MD-76R [Suspect]
     Indication: CATHETERISATION CARDIAC
     Dosage: 150 ML, SINGLE
     Route: 042
     Dates: start: 20121001, end: 20121001

REACTIONS (1)
  - Urticaria [Recovered/Resolved]
